FAERS Safety Report 10194243 (Version 2)
Quarter: 2014Q2

REPORT INFORMATION
  Report Type: Spontaneous
  Country: ES (occurrence: ES)
  Receive Date: 20140525
  Receipt Date: 20140525
  Transmission Date: 20141212
  Serious: Yes (Hospitalization)
  Sender: FDA-Public Use
  Company Number: ES-JNJFOC-20130518554

PATIENT
  Age: 80 Year
  Sex: Female

DRUGS (3)
  1. MICONAZOLE [Suspect]
     Route: 048
  2. MICONAZOLE [Suspect]
     Indication: ORAL CANDIDIASIS
     Route: 048
  3. ACENOCOUMAROL [Interacting]
     Indication: PRODUCT USED FOR UNKNOWN INDICATION
     Route: 065

REACTIONS (4)
  - Haematoma [Recovered/Resolved]
  - Drug interaction [Recovered/Resolved]
  - Abdominal pain [Recovered/Resolved]
  - International normalised ratio increased [Recovered/Resolved]
